APPROVED DRUG PRODUCT: MESNA
Active Ingredient: MESNA
Strength: 100MG/ML
Dosage Form/Route: INJECTABLE;INTRAVENOUS
Application: A206992 | Product #001 | TE Code: AP
Applicant: GLAND PHARMA LTD
Approved: Dec 18, 2017 | RLD: No | RS: No | Type: RX